FAERS Safety Report 8576026-3 (Version None)
Quarter: 2012Q3

REPORT INFORMATION
  Report Type: 
  Country: None (occurrence: None)
  Receive Date: 20120807
  Receipt Date: 20120803
  Transmission Date: 20120928
  Serious: Yes (Death, Hospitalization)
  Sender: FDA-Public Use
  Company Number: US-BIOMARINP-002790

PATIENT
  Sex: Male
  Weight: 62.7 kg

DRUGS (17)
  1. SYNTHROID [Concomitant]
     Indication: PRODUCT USED FOR UNKNOWN INDICATION
  2. CLARITIN [Concomitant]
     Indication: PRODUCT USED FOR UNKNOWN INDICATION
  3. CALCIUM CARBONATE [Concomitant]
     Indication: PRODUCT USED FOR UNKNOWN INDICATION
  4. SINGULAIR [Concomitant]
     Indication: PRODUCT USED FOR UNKNOWN INDICATION
  5. ALBUTEROL [Concomitant]
     Indication: PRODUCT USED FOR UNKNOWN INDICATION
  6. NEXIUM [Concomitant]
     Indication: PRODUCT USED FOR UNKNOWN INDICATION
  7. TIMOLOL MALEATE [Concomitant]
     Indication: PRODUCT USED FOR UNKNOWN INDICATION
  8. CARBITROL [Concomitant]
     Indication: PRODUCT USED FOR UNKNOWN INDICATION
  9. KUVAN [Suspect]
     Indication: PHENYLKETONURIA
     Route: 048
     Dates: start: 20090601
  10. BONIVA [Concomitant]
     Indication: PRODUCT USED FOR UNKNOWN INDICATION
  11. COLACE [Concomitant]
     Indication: PRODUCT USED FOR UNKNOWN INDICATION
  12. CITRICAL [Concomitant]
     Indication: PRODUCT USED FOR UNKNOWN INDICATION
  13. PULMICORT [Concomitant]
     Indication: PRODUCT USED FOR UNKNOWN INDICATION
  14. KRISTALOSE [Concomitant]
     Indication: PRODUCT USED FOR UNKNOWN INDICATION
  15. BUSPAR [Concomitant]
     Indication: PRODUCT USED FOR UNKNOWN INDICATION
  16. LUVOX [Concomitant]
     Indication: PRODUCT USED FOR UNKNOWN INDICATION
  17. ATIVAN [Concomitant]
     Indication: PRODUCT USED FOR UNKNOWN INDICATION

REACTIONS (4)
  - DEATH [None]
  - PNEUMONIA [None]
  - ORGAN FAILURE [None]
  - UPPER RESPIRATORY TRACT INFECTION [None]
